FAERS Safety Report 9302921 (Version 1)
Quarter: 2013Q2

REPORT INFORMATION
  Report Type: Spontaneous
  Country: AU (occurrence: None)
  Receive Date: 20130516
  Receipt Date: 20130516
  Transmission Date: 20140414
  Serious: Yes (Hospitalization)
  Sender: FDA-Public Use
  Company Number: 2012000309

PATIENT
  Age: 81 Year
  Sex: Female

DRUGS (4)
  1. ACEON (PERINDOPRIL ERBUMINE) TABLET [Suspect]
     Indication: ESSENTIAL HYPERTENSION
     Route: 048
     Dates: start: 20120530, end: 20120601
  2. AMIODARONE [Concomitant]
  3. CLOPIDOGREL [Concomitant]
  4. FENOFIBRATE [Concomitant]

REACTIONS (4)
  - Swollen tongue [None]
  - Dysphagia [None]
  - Pharyngeal oedema [None]
  - Angioedema [None]
